FAERS Safety Report 25020871 (Version 1)
Quarter: 2025Q1

REPORT INFORMATION
  Report Type: Report from Study
  Country: US (occurrence: US)
  Receive Date: 20250227
  Receipt Date: 20250227
  Transmission Date: 20250409
  Serious: Yes (Other)
  Sender: ABBVIE
  Company Number: US-ABBVIE-6149398

PATIENT
  Age: 59 Year
  Sex: Female

DRUGS (1)
  1. RINVOQ [Suspect]
     Active Substance: UPADACITINIB
     Indication: Rheumatoid arthritis
     Route: 048
     Dates: start: 20230301

REACTIONS (6)
  - Peripheral nerve operation [Recovering/Resolving]
  - Arthralgia [Unknown]
  - Hypoaesthesia [Unknown]
  - Carpal tunnel syndrome [Not Recovered/Not Resolved]
  - Inflammation [Unknown]
  - Paraesthesia [Unknown]

NARRATIVE: CASE EVENT DATE: 20241014
